FAERS Safety Report 7631121-8 (Version None)
Quarter: 2011Q3

REPORT INFORMATION
  Report Type: 
  Country: None (occurrence: None)
  Receive Date: 20110725
  Receipt Date: 20110714
  Transmission Date: 20111222
  Serious: No
  Sender: FDA-Public Use
  Company Number: US-JNJFOC-20110707363

PATIENT
  Sex: Male
  Weight: 103.42 kg

DRUGS (2)
  1. FENTANYL-100 [Suspect]
     Indication: BACK PAIN
     Route: 062
     Dates: start: 20110601
  2. FENTANYL-100 [Suspect]
     Route: 062

REACTIONS (3)
  - DRUG DOSE OMISSION [None]
  - HEART RATE INCREASED [None]
  - DIZZINESS [None]
